FAERS Safety Report 13151618 (Version 11)
Quarter: 2018Q4

REPORT INFORMATION
  Report Type: Spontaneous
  Country: US (occurrence: US)
  Receive Date: 20170125
  Receipt Date: 20181116
  Transmission Date: 20190204
  Serious: Yes (Hospitalization)
  Sender: FDA-Public Use
  Company Number: US-ASTRAZENECA-2000UW03963

PATIENT
  Age: 696 Month
  Sex: Female
  Weight: 59 kg

DRUGS (22)
  1. TUDORZA PRESSAIR [Suspect]
     Active Substance: ACLIDINIUM BROMIDE
     Indication: EMPHYSEMA
     Route: 055
     Dates: start: 20170102
  2. SYMBICORT [Suspect]
     Active Substance: BUDESONIDE\FORMOTEROL FUMARATE DIHYDRATE
     Indication: EMPHYSEMA
     Dosage: 160/4.5 2 PUFF TWO TIMES A DAY
     Route: 055
     Dates: start: 2010
  3. CELEXA [Concomitant]
     Active Substance: CITALOPRAM HYDROBROMIDE
     Indication: DEPRESSION
     Dates: start: 20000724, end: 20001107
  4. ATENOLOL. [Concomitant]
     Active Substance: ATENOLOL
     Route: 048
     Dates: start: 19990926
  5. FLECAINIDE [Concomitant]
     Active Substance: FLECAINIDE
     Indication: ATRIAL FIBRILLATION
     Dosage: 200.0MG AS REQUIRED
     Route: 048
  6. TUDORZA PRESSAIR [Suspect]
     Active Substance: ACLIDINIUM BROMIDE
     Indication: EMPHYSEMA
     Route: 055
     Dates: start: 2013, end: 201612
  7. THEOPHYLLINE [Concomitant]
     Active Substance: THEOPHYLLINE ANHYDROUS
     Indication: EMPHYSEMA
     Dosage: CUTS A 400 MG THEOPHYLLINE ER TABLET IN HALF AND TOOK HALF TABLET DAILY
     Route: 048
     Dates: start: 2010
  8. THEOPHYLLINE [Concomitant]
     Active Substance: THEOPHYLLINE ANHYDROUS
     Indication: EMPHYSEMA
     Route: 048
     Dates: start: 2010
  9. NOLVADEX [Suspect]
     Active Substance: TAMOXIFEN CITRATE
     Indication: BREAST CANCER FEMALE
     Dosage: TAMOXIFEN
     Route: 048
  10. COMBIVENT [Concomitant]
     Active Substance: ALBUTEROL SULFATE\IPRATROPIUM BROMIDE
     Indication: EMPHYSEMA
     Dosage: AS REQUIRED
     Route: 055
  11. NOLVADEX [Suspect]
     Active Substance: TAMOXIFEN CITRATE
     Indication: BREAST CANCER FEMALE
     Dosage: TAMOXIFEN, 10 MG TWICE DAILY
     Route: 048
     Dates: start: 200002
  12. TUDORZA PRESSAIR [Suspect]
     Active Substance: ACLIDINIUM BROMIDE
     Indication: EMPHYSEMA
     Dosage: 400.0UG UNKNOWN
     Route: 055
  13. SYNTHROID [Concomitant]
     Active Substance: LEVOTHYROXINE SODIUM
     Indication: HYPOTHYROIDISM
     Route: 048
     Dates: start: 1998
  14. FORADIL [Concomitant]
     Active Substance: FORMOTEROL FUMARATE
     Indication: EMPHYSEMA
     Route: 055
  15. NOLVADEX [Suspect]
     Active Substance: TAMOXIFEN CITRATE
     Indication: BREAST CANCER FEMALE
     Route: 048
     Dates: start: 20001008, end: 20001024
  16. TUDORZA PRESSAIR [Suspect]
     Active Substance: ACLIDINIUM BROMIDE
     Indication: EMPHYSEMA
     Route: 055
  17. THEOPHYLLINE [Concomitant]
     Active Substance: THEOPHYLLINE ANHYDROUS
     Indication: EMPHYSEMA
     Route: 048
     Dates: start: 2010
  18. PROAIR HFA [Concomitant]
     Active Substance: ALBUTEROL SULFATE
     Indication: EMPHYSEMA
     Dosage: 2 INHALATION EVERY 3 TO 4 HOURS
     Route: 055
     Dates: start: 2012
  19. TUDORZA PRESSAIR [Suspect]
     Active Substance: ACLIDINIUM BROMIDE
     Indication: EMPHYSEMA
     Route: 055
  20. PULMICORT FLEXHALER [Suspect]
     Active Substance: BUDESONIDE
     Indication: EMPHYSEMA
     Route: 055
     Dates: start: 20121213
  21. SYNTHROID [Concomitant]
     Active Substance: LEVOTHYROXINE SODIUM
     Indication: HYPOTHYROIDISM
     Route: 048
     Dates: start: 1997
  22. FLECAINIDE [Concomitant]
     Active Substance: FLECAINIDE
     Indication: ATRIAL FIBRILLATION
     Dosage: 100.0MG AS REQUIRED
     Route: 048
     Dates: start: 2002

REACTIONS (23)
  - Skin odour abnormal [Unknown]
  - Weight decreased [Unknown]
  - Abdominal pain upper [Recovering/Resolving]
  - Device issue [Unknown]
  - Emphysema [Unknown]
  - Product dose omission [Unknown]
  - Product use in unapproved indication [Unknown]
  - Dyspnoea [Not Recovered/Not Resolved]
  - Memory impairment [Unknown]
  - Frustration tolerance decreased [Unknown]
  - Abdominal discomfort [Recovering/Resolving]
  - Back pain [Unknown]
  - Feeling abnormal [Unknown]
  - Off label use [Unknown]
  - Intentional product misuse [Unknown]
  - Atrial fibrillation [Unknown]
  - Weight increased [Unknown]
  - Fatigue [Unknown]
  - Back injury [Unknown]
  - Incorrect dose administered [Unknown]
  - Adenovirus infection [Unknown]
  - Dysphonia [Not Recovered/Not Resolved]
  - Vaginal discharge [Unknown]

NARRATIVE: CASE EVENT DATE: 200002
